FAERS Safety Report 13982294 (Version 3)
Quarter: 2017Q4

REPORT INFORMATION
  Report Type: Report from Study
  Country: US (occurrence: US)
  Receive Date: 20170918
  Receipt Date: 20171110
  Transmission Date: 20180321
  Serious: Yes (Hospitalization, Other)
  Sender: FDA-Public Use
  Company Number: US-BAYER-2017-145811

PATIENT
  Age: 75 Year
  Sex: Male

DRUGS (4)
  1. TEGRETOL [Concomitant]
     Active Substance: CARBAMAZEPINE
     Indication: NERVOUS SYSTEM DISORDER
  2. XOFIGO [Suspect]
     Active Substance: RADIUM RA-223 DICHLORIDE
     Indication: PROSTATE CANCER STAGE IV
     Dosage: 93.80 UCI, ONCE EVERY 28 DAYS
     Route: 042
     Dates: start: 20170628
  3. PREDNISONE. [Concomitant]
     Active Substance: PREDNISONE
     Dosage: 15 MG, QD
  4. XOFIGO [Suspect]
     Active Substance: RADIUM RA-223 DICHLORIDE
     Indication: METASTASES TO BONE
     Dosage: 89.05 ?CI, Q4WK
     Route: 042
     Dates: start: 20170804, end: 20170804

REACTIONS (7)
  - Fatigue [None]
  - Dyspnoea exertional [None]
  - Anaemia [None]
  - Pulmonary congestion [None]
  - Hospitalisation [None]
  - Cytopenia [None]
  - Malaise [None]

NARRATIVE: CASE EVENT DATE: 201707
